FAERS Safety Report 15702501 (Version 1)
Quarter: 2018Q4

REPORT INFORMATION
  Report Type: Spontaneous
  Country: US (occurrence: US)
  Receive Date: 20181208
  Receipt Date: 20181208
  Transmission Date: 20190205
  Serious: Yes (Other)
  Sender: FDA-Public Use
  Company Number: None

PATIENT
  Age: 8 Month
  Sex: Male
  Weight: 8.68 kg

DRUGS (1)
  1. INFANTS DYE FREE IBUPROFEN [Suspect]
     Active Substance: IBUPROFEN
     Indication: PYREXIA
     Dosage: ?          QUANTITY:1.25 INJECTION(S);?
     Route: 048
     Dates: start: 20181130, end: 20181203

REACTIONS (3)
  - Vomiting [None]
  - Pyrexia [None]
  - Diarrhoea [None]

NARRATIVE: CASE EVENT DATE: 20181203
